FAERS Safety Report 21443867 (Version 1)
Quarter: 2022Q4

REPORT INFORMATION
  Report Type: Spontaneous
  Country: CA (occurrence: CA)
  Receive Date: 20221012
  Receipt Date: 20221012
  Transmission Date: 20230112
  Serious: Yes (Life-Threatening, Hospitalization)
  Sender: FDA-Public Use
  Company Number: None

PATIENT
  Age: 20 Year
  Sex: Male

DRUGS (5)
  1. FAMOTIDINE [Suspect]
     Active Substance: FAMOTIDINE
     Indication: Antiemetic supportive care
     Route: 065
  2. FAMOTIDINE [Suspect]
     Active Substance: FAMOTIDINE
     Indication: Suicide attempt
  3. METOCLOPRAMIDE [Suspect]
     Active Substance: METOCLOPRAMIDE
     Indication: Antiemetic supportive care
     Route: 065
  4. METOCLOPRAMIDE [Suspect]
     Active Substance: METOCLOPRAMIDE
     Indication: Suicide attempt
  5. SODIUM NITRITE [Suspect]
     Active Substance: SODIUM NITRITE
     Indication: Suicide attempt
     Route: 048

REACTIONS (4)
  - Suicide attempt [Unknown]
  - Coma [Recovered/Resolved]
  - Methaemoglobinaemia [Recovered/Resolved]
  - Cyanosis [Recovered/Resolved]
